FAERS Safety Report 8861109 (Version 1)
Quarter: 2012Q4

REPORT INFORMATION
  Report Type: Spontaneous
  Country: TR (occurrence: None)
  Receive Date: 20121023
  Receipt Date: 20121023
  Transmission Date: 20130627
  Serious: Yes (Hospitalization)
  Sender: FDA-Public Use
  Company Number: 2012-4769

PATIENT
  Age: 53 Year
  Sex: Female

DRUGS (1)
  1. SOMATULINE AUTOGEL [Suspect]
     Indication: NEUROENDOCRINE CARCINOMA
     Route: 058
     Dates: start: 201206

REACTIONS (1)
  - Cholecystitis [None]
